FAERS Safety Report 10045771 (Version 1)
Quarter: 2014Q1

REPORT INFORMATION
  Report Type: Spontaneous
  Country: US (occurrence: US)
  Receive Date: 20140328
  Receipt Date: 20140328
  Transmission Date: 20141002
  Serious: No
  Sender: FDA-Public Use
  Company Number: US-GILEAD-2014-0098146

PATIENT
  Age: 35 Year
  Sex: Female

DRUGS (4)
  1. LETAIRIS [Suspect]
     Indication: PRODUCT USED FOR UNKNOWN INDICATION
     Dosage: 10 MG, UNK
     Route: 048
     Dates: start: 20090127
  2. LETAIRIS [Suspect]
     Indication: DYSPNOEA
  3. ADCIRCA [Concomitant]
  4. TYVASO [Concomitant]

REACTIONS (2)
  - Dyspnoea [Not Recovered/Not Resolved]
  - Nasopharyngitis [Unknown]
